FAERS Safety Report 26174113 (Version 1)
Quarter: 2025Q4

REPORT INFORMATION
  Report Type: Spontaneous
  Country: GB (occurrence: GB)
  Receive Date: 20251218
  Receipt Date: 20251218
  Transmission Date: 20260117
  Serious: Yes (Other)
  Sender: GALPHARM INTERNATIONAL
  Company Number: None

PATIENT
  Sex: Male

DRUGS (13)
  1. CETIRIZINE HYDROCHLORIDE [Suspect]
     Active Substance: CETIRIZINE HYDROCHLORIDE
     Indication: Chronic spontaneous urticaria
     Dosage: 10MG OM
     Route: 065
     Dates: start: 20251117, end: 20251203
  2. TRAZODONE [Concomitant]
     Active Substance: TRAZODONE HYDROCHLORIDE
  3. BISOPROLOL [Concomitant]
     Active Substance: BISOPROLOL
  4. RISPERIDONE [Concomitant]
     Active Substance: RISPERIDONE
  5. DIAZEPAM [Concomitant]
     Active Substance: DIAZEPAM
  6. PROMETHAZINE [Concomitant]
     Active Substance: PROMETHAZINE HYDROCHLORIDE
  7. SENNA+ [Concomitant]
  8. CODEINE [Concomitant]
     Active Substance: CODEINE
  9. BONJELA ADULT [Concomitant]
  10. ACETAMINOPHEN [Concomitant]
     Active Substance: ACETAMINOPHEN
  11. BUDESONIDE [Concomitant]
     Active Substance: BUDESONIDE
  12. LACTULOSE [Concomitant]
     Active Substance: LACTULOSE
  13. OMEPRAZOLE [Concomitant]
     Active Substance: OMEPRAZOLE

REACTIONS (1)
  - Liver function test abnormal [Recovering/Resolving]
